FAERS Safety Report 15476735 (Version 1)
Quarter: 2018Q4

REPORT INFORMATION
  Report Type: Spontaneous
  Country: US (occurrence: US)
  Receive Date: 20181009
  Receipt Date: 20181009
  Transmission Date: 20190205
  Serious: Yes (Hospitalization, Other)
  Sender: FDA-Public Use
  Company Number: US-ZYDUS-028949

PATIENT
  Age: 77 Year
  Sex: Male

DRUGS (2)
  1. COLCHICINE. [Concomitant]
     Active Substance: COLCHICINE
     Indication: GOUTY ARTHRITIS
     Route: 065
  2. ALLOPURINOL. [Suspect]
     Active Substance: ALLOPURINOL
     Indication: GOUTY ARTHRITIS
     Route: 065

REACTIONS (7)
  - Rash [Unknown]
  - Rash maculo-papular [Unknown]
  - Drug reaction with eosinophilia and systemic symptoms [Unknown]
  - Myalgia [Unknown]
  - Pyrexia [Unknown]
  - Eosinophilia [Unknown]
  - Leukopenia [Unknown]
